FAERS Safety Report 7203151-1 (Version None)
Quarter: 2010Q4

REPORT INFORMATION
  Report Type: 
  Country: None (occurrence: None)
  Receive Date: 20101229
  Receipt Date: 20101216
  Transmission Date: 20110411
  Serious: Yes (Hospitalization)
  Sender: FDA-Public Use
  Company Number: US-MYLANLABS-2010S1023443

PATIENT
  Age: 55 Year
  Sex: Male

DRUGS (15)
  1. FENTANYL-100 [Interacting]
     Indication: PROCEDURAL PAIN
     Route: 041
  2. FENTANYL-100 [Interacting]
     Indication: PAIN
     Route: 041
  3. FENTANYL-100 [Interacting]
     Route: 041
  4. FENTANYL-100 [Interacting]
     Route: 041
  5. DILTIAZEM [Suspect]
     Route: 065
  6. PROPOFOL [Interacting]
     Route: 065
  7. CHLORPROMAZINE [Concomitant]
     Route: 065
  8. DIGOXIN [Concomitant]
     Route: 065
  9. FUROSEMIDE [Concomitant]
     Route: 065
  10. HEPARIN [Concomitant]
     Route: 065
  11. IPRATROPIUM BROMIDE [Concomitant]
     Route: 055
  12. LEVOSALBUTAMOL [Concomitant]
     Route: 055
  13. METOPROLOL [Concomitant]
     Route: 065
  14. PIPERACILLIN W/TAZOBACTAM          /01606301/ [Concomitant]
     Route: 065
  15. TOBRAMYCIN [Concomitant]
     Route: 055

REACTIONS (3)
  - DELIRIUM [None]
  - DRUG INTERACTION [None]
  - MYOCLONUS [None]
